FAERS Safety Report 20977585 (Version 1)
Quarter: 2022Q2

REPORT INFORMATION
  Report Type: Report from Study
  Country: US (occurrence: US)
  Receive Date: 20220618
  Receipt Date: 20220618
  Transmission Date: 20220721
  Serious: Yes (Other)
  Sender: FDA-Public Use
  Company Number: US-ABBVIE-22K-163-4433956-00

PATIENT
  Sex: Male

DRUGS (1)
  1. RINVOQ [Suspect]
     Active Substance: UPADACITINIB
     Indication: Product used for unknown indication
     Route: 048

REACTIONS (5)
  - Colectomy [Recovering/Resolving]
  - Haematochezia [Recovering/Resolving]
  - Blood pressure abnormal [Recovering/Resolving]
  - Rectal haemorrhage [Recovering/Resolving]
  - Hypotension [Unknown]
